FAERS Safety Report 9432757 (Version 1)
Quarter: 2013Q3

REPORT INFORMATION
  Report Type: Spontaneous
  Country: ES (occurrence: ES)
  Receive Date: 20130731
  Receipt Date: 20130731
  Transmission Date: 20140515
  Serious: Yes (Life-Threatening)
  Sender: FDA-Public Use
  Company Number: ES-TEVA-422255ISR

PATIENT
  Age: 39 Year
  Sex: Male

DRUGS (1)
  1. IBUPROFENO RATIOPHARM 600 MG COMPRIMIDOS RECUBIERTOS CON PELICULA EFG, [Suspect]
     Dosage: 1200 MILLIGRAM DAILY;
     Route: 048
     Dates: start: 20130705, end: 20130706

REACTIONS (2)
  - Palatal oedema [Unknown]
  - Expired drug administered [Unknown]
